FAERS Safety Report 20706456 (Version 1)
Quarter: 2022Q2

REPORT INFORMATION
  Report Type: Spontaneous
  Country: US (occurrence: US)
  Receive Date: 20220413
  Receipt Date: 20220413
  Transmission Date: 20220720
  Serious: Yes (Hospitalization, Other)
  Sender: FDA-Public Use
  Company Number: US-GLAXOSMITHKLINE-US2022GSK063056

PATIENT
  Sex: Male

DRUGS (2)
  1. BUPROPION [Suspect]
     Active Substance: BUPROPION
     Indication: Bipolar disorder
     Dosage: CRUSHING,INSUFFLATING 8-9 RANDOM COMBINATION OF 150MG AND 300MG TABLET\UP TO 2700MG EVERY OTHER DAY
     Route: 045
  2. BUPROPION [Suspect]
     Active Substance: BUPROPION
     Indication: Schizoaffective disorder

REACTIONS (11)
  - Substance-induced psychotic disorder [Unknown]
  - Hyponatraemia [Unknown]
  - Intentional self-injury [Unknown]
  - Hallucination, visual [Recovered/Resolved]
  - Suicidal ideation [Unknown]
  - Suicide attempt [Unknown]
  - Hallucination, auditory [Unknown]
  - Mental disorder [Unknown]
  - Incorrect route of product administration [Unknown]
  - Wrong technique in product usage process [Unknown]
  - Extra dose administered [Unknown]
